FAERS Safety Report 18694566 (Version 1)
Quarter: 2021Q1

REPORT INFORMATION
  Report Type: Spontaneous
  Country: ES (occurrence: ES)
  Receive Date: 20210104
  Receipt Date: 20210104
  Transmission Date: 20210419
  Serious: Yes (Hospitalization, Other)
  Sender: FDA-Public Use
  Company Number: ES-TEVA-2020-ES-1864333

PATIENT
  Age: 63 Year
  Sex: Female

DRUGS (5)
  1. TWICOR 20 MG/10 MG COMPRIMIDOS RECUBIERTOS CON PELICULA 30 COMPRIMIDOS [Suspect]
     Active Substance: EZETIMIBE\ROSUVASTATIN
     Indication: HYPERCHOLESTEROLAEMIA
     Dosage: 1 DOSAGE FORMS DAILY;
     Route: 048
     Dates: start: 20200207, end: 20201130
  2. ESOMEPRAZOL (1172A) [Suspect]
     Active Substance: ESOMEPRAZOLE
     Indication: OESOPHAGITIS
     Dosage: 80 MILLIGRAM DAILY;
     Route: 048
     Dates: start: 20161130, end: 20201210
  3. BOSENTAN (2882A) [Suspect]
     Active Substance: BOSENTAN
     Indication: SYSTEMIC SCLERODERMA
     Dosage: 125 MILLIGRAM DAILY;
     Route: 048
     Dates: start: 20200206, end: 20201130
  4. ENALAPRIL (2142A) [Suspect]
     Active Substance: ENALAPRIL
     Indication: HYPERTENSION
     Dosage: 20 MILLIGRAM DAILY;
     Route: 048
     Dates: start: 20171130, end: 20201130
  5. ACIDO ACETILSALICILICO CINFA 100 MG COMPRIMIDOS GASTRORRESISTENTES EFG [Suspect]
     Active Substance: ASPIRIN
     Indication: SYSTEMIC SCLERODERMA
     Dosage: 100 MILLIGRAM DAILY;
     Route: 048
     Dates: start: 20120201, end: 20201130

REACTIONS (1)
  - Hepatitis cholestatic [Recovering/Resolving]

NARRATIVE: CASE EVENT DATE: 20201125
